FAERS Safety Report 24020280 (Version 1)
Quarter: 2024Q2

REPORT INFORMATION
  Report Type: Spontaneous
  Country: US (occurrence: None)
  Receive Date: 20240627
  Receipt Date: 20240627
  Transmission Date: 20240716
  Serious: Yes (Other)
  Sender: FDA-Public Use
  Company Number: None

PATIENT
  Age: 36 Year
  Sex: Female
  Weight: 108 kg

DRUGS (10)
  1. OZEMPIC [Suspect]
     Active Substance: SEMAGLUTIDE
     Indication: Weight control
     Dosage: OTHER QUANTITY : 1 INJECTION(S);?OTHER FREQUENCY : 1X EVERY 7 DAYS;?
     Route: 058
     Dates: start: 20211101, end: 20230405
  2. OZEMPIC [Suspect]
     Active Substance: SEMAGLUTIDE
     Indication: Glucose tolerance impaired
  3. OZEMPIC [Suspect]
     Active Substance: SEMAGLUTIDE
     Indication: Glucose tolerance impaired
  4. OZEMPIC [Suspect]
     Active Substance: SEMAGLUTIDE
     Indication: Glucose tolerance impaired
  5. PROPRANOLOL [Concomitant]
     Active Substance: PROPRANOLOL HYDROCHLORIDE
  6. YASMIN [Concomitant]
     Active Substance: DROSPIRENONE\ETHINYL ESTRADIOL
  7. OMEPRAZOLE [Concomitant]
     Active Substance: OMEPRAZOLE
  8. ELETRIPTAN [Concomitant]
     Active Substance: ELETRIPTAN
  9. VITAMINS [Concomitant]
     Active Substance: VITAMINS
  10. CINNAMON [Concomitant]
     Active Substance: CINNAMON

REACTIONS (5)
  - Regurgitation [None]
  - Diarrhoea [None]
  - Gastrooesophageal reflux disease [None]
  - Cholelithiasis [None]
  - Gallbladder disorder [None]

NARRATIVE: CASE EVENT DATE: 20230920
